FAERS Safety Report 4360776-9 (Version None)
Quarter: 2004Q2

REPORT INFORMATION
  Report Type: 
  Country: None (occurrence: None)
  Receive Date: 20040519
  Receipt Date: 20040519
  Transmission Date: 20050107
  Serious: Yes (Other)
  Sender: FDA-Public Use
  Company Number: None

PATIENT
  Age: 28 Year
  Sex: Male

DRUGS (2)
  1. ISOVUE-300 [Suspect]
     Indication: SCAN WITH CONTRAST
     Dosage: 130 ML IV
     Route: 042
     Dates: start: 20031121
  2. NS [Concomitant]

REACTIONS (4)
  - CONTRAST MEDIA REACTION [None]
  - DYSPNOEA [None]
  - PRURITUS [None]
  - URTICARIA [None]
